FAERS Safety Report 8934127 (Version 1)
Quarter: 2012Q4

REPORT INFORMATION
  Report Type: 
  Country: US (occurrence: US)
  Receive Date: 20121129
  Receipt Date: 20121129
  Transmission Date: 20130627
  Serious: No
  Sender: FDA-Public Use
  Company Number: US-GLAXOSMITHKLINE-A0970876A

PATIENT
  Sex: Female
  Weight: 163.6 kg

DRUGS (18)
  1. WELLBUTRIN SR [Suspect]
     Indication: NAUSEA
     Dosage: 150MG Twice per day
     Route: 048
  2. EFFEXOR XR [Concomitant]
  3. ADVAIR [Concomitant]
  4. FLONASE [Concomitant]
  5. AMLODIPINE [Concomitant]
  6. OMEPRAZOLE [Concomitant]
  7. GLYBURIDE [Concomitant]
  8. METFORMIN [Concomitant]
  9. SIMVASTATIN [Concomitant]
  10. ALLEGRA [Concomitant]
  11. SLOW FE [Concomitant]
  12. VITAMIN D [Concomitant]
  13. METOPROLOL [Concomitant]
  14. LORAZEPAM [Concomitant]
  15. MULTIVITAMIN [Concomitant]
  16. FISH OIL [Concomitant]
  17. VENTOLIN HFA [Concomitant]
  18. BACLOFEN [Concomitant]

REACTIONS (1)
  - Drug ineffective [Not Recovered/Not Resolved]
